FAERS Safety Report 5700972-9 (Version None)
Quarter: 2008Q2

REPORT INFORMATION
  Report Type: 
  Country: None (occurrence: None)
  Receive Date: 20080410
  Receipt Date: 20080331
  Transmission Date: 20081010
  Serious: Yes (Other)
  Sender: FDA-Public Use
  Company Number: PH-ROCHE-556083

PATIENT

DRUGS (2)
  1. FANSIDAR [Suspect]
     Indication: MALARIA
     Route: 065
  2. FANSIDAR [Suspect]
     Route: 065

REACTIONS (1)
  - PROSTATOMEGALY [None]
